FAERS Safety Report 14248150 (Version 5)
Quarter: 2018Q3

REPORT INFORMATION
  Report Type: Spontaneous
  Country: FR (occurrence: FR)
  Receive Date: 20171204
  Receipt Date: 20180823
  Transmission Date: 20181010
  Serious: Yes (Hospitalization, Other)
  Sender: FDA-Public Use
  Company Number: FR-PFIZER INC-2017509987

PATIENT
  Age: 63 Year
  Sex: Male

DRUGS (4)
  1. CORTIVAZOL [Suspect]
     Active Substance: CORTIVAZOL
     Indication: TENOSYNOVITIS
     Dosage: 120 UNK, UNK
     Route: 065
     Dates: start: 201304, end: 201304
  2. PREDNISONE. [Suspect]
     Active Substance: PREDNISONE
     Indication: RHEUMATOID ARTHRITIS
     Dosage: 7 MG, DAILY
     Route: 065
  3. CORTIVAZOL [Suspect]
     Active Substance: CORTIVAZOL
     Dosage: UNK
     Dates: start: 201312, end: 201312
  4. METHOTREXATE SODIUM. [Suspect]
     Active Substance: METHOTREXATE SODIUM
     Indication: RHEUMATOID ARTHRITIS
     Dosage: 20 MG, WEEKLY

REACTIONS (2)
  - Tenosynovitis [Recovered/Resolved]
  - Phaehyphomycosis [Recovered/Resolved]

NARRATIVE: CASE EVENT DATE: 201304
